FAERS Safety Report 11597083 (Version 4)
Quarter: 2015Q4

REPORT INFORMATION
  Report Type: Spontaneous
  Country: US (occurrence: US)
  Receive Date: 20151006
  Receipt Date: 20151217
  Transmission Date: 20160304
  Serious: Yes (Hospitalization, Other)
  Sender: FDA-Public Use
  Company Number: PHEH2015US018778

PATIENT
  Age: 39 Year
  Sex: Female
  Weight: 99.77 kg

DRUGS (32)
  1. AFINITOR [Suspect]
     Active Substance: EVEROLIMUS
     Indication: BREAST CANCER METASTATIC
     Dosage: UNK
     Route: 065
     Dates: start: 201403, end: 201503
  2. EXEMESTANE. [Suspect]
     Active Substance: EXEMESTANE
     Indication: BREAST CANCER FEMALE
  3. TAMOXIFEN [Suspect]
     Active Substance: TAMOXIFEN
     Indication: BREAST CANCER METASTATIC
     Dosage: X 5 MONTHS
     Route: 065
     Dates: start: 201203, end: 201208
  4. PALBOCICLIB [Concomitant]
     Active Substance: PALBOCICLIB
     Indication: BREAST CANCER
     Dosage: 125 MG, UNK
     Route: 048
     Dates: start: 20150721
  5. CEPHALEXIN. [Concomitant]
     Active Substance: CEPHALEXIN
     Indication: PRODUCT USED FOR UNKNOWN INDICATION
     Dosage: 1 DF, QID (UNTIL GONE)
     Route: 048
     Dates: start: 20150731
  6. BUPROPION HCL ER [Concomitant]
     Active Substance: BUPROPION HYDROCHLORIDE
     Indication: PRODUCT USED FOR UNKNOWN INDICATION
     Dosage: 1 DF, UNK (EXTENDED RELEASE 12 HOURS)
     Route: 048
     Dates: start: 20141223
  7. CLINDAMYCIN HCL [Concomitant]
     Active Substance: CLINDAMYCIN HYDROCHLORIDE
     Indication: PRODUCT USED FOR UNKNOWN INDICATION
     Dosage: 300 MG, UNK
     Route: 048
     Dates: start: 20150218
  8. DICYCLOMINE HCL [Concomitant]
     Active Substance: DICYCLOMINE HYDROCHLORIDE
     Indication: DYSPEPSIA
     Dosage: 1 DF, PRN (EVERY 4 TO 6 HOURS)
     Route: 048
     Dates: start: 20150223
  9. LUTEINIZING HORMONE-RELEASING HORMONE [Concomitant]
     Active Substance: LUTEINIZING HORMONE
     Indication: PRODUCT USED FOR UNKNOWN INDICATION
     Dosage: MONTHLY
     Route: 065
     Dates: start: 201403
  10. REMAFEN [Concomitant]
     Indication: PRODUCT USED FOR UNKNOWN INDICATION
     Route: 065
  11. AREDIA [Suspect]
     Active Substance: PAMIDRONATE DISODIUM
     Indication: BREAST CANCER
     Dosage: UNK
     Route: 065
     Dates: start: 201203, end: 201411
  12. CIMETIDINE [Concomitant]
     Active Substance: CIMETIDINE
     Indication: PRODUCT USED FOR UNKNOWN INDICATION
     Dosage: 400 MG, UNK
     Route: 048
     Dates: start: 20140814
  13. HYDROCODONE BITARTRATE AND ACETAMINOPHEN [Concomitant]
     Active Substance: ACETAMINOPHEN\HYDROCODONE BITARTRATE
     Indication: PAIN
     Dosage: 1 DF, Q6H (PRN), 10-325 MG AS NEEDED
     Route: 048
     Dates: start: 20150514
  14. LORAZEPAM. [Concomitant]
     Active Substance: LORAZEPAM
     Indication: ANXIETY
     Dosage: 1 DF, PRN (EVERY 4 TO 6 HOURS)
     Route: 048
     Dates: start: 20150506
  15. FUROSEMIDE. [Concomitant]
     Active Substance: FUROSEMIDE
     Indication: PRODUCT USED FOR UNKNOWN INDICATION
     Dosage: 1 DF, QD (PRN)
     Route: 048
     Dates: start: 20150731
  16. CALCIUM [Concomitant]
     Active Substance: CALCIUM
     Indication: MINERAL SUPPLEMENTATION
     Dosage: UNK
     Route: 065
  17. AFINITOR [Suspect]
     Active Substance: EVEROLIMUS
     Indication: BREAST CANCER FEMALE
  18. EXEMESTANE. [Suspect]
     Active Substance: EXEMESTANE
     Indication: BREAST CANCER METASTATIC
     Dosage: X 12 CYCLES
     Route: 065
     Dates: start: 201403, end: 201503
  19. XELODA [Concomitant]
     Active Substance: CAPECITABINE
     Indication: PRODUCT USED FOR UNKNOWN INDICATION
     Dosage: X 7
     Route: 065
     Dates: start: 20120831, end: 20130327
  20. AC                                 /08191701/ [Concomitant]
     Indication: BREAST CANCER METASTATIC
     Dosage: X 6 CYCLES
     Route: 065
     Dates: start: 20130404, end: 20130718
  21. IBUPROFEN. [Concomitant]
     Active Substance: IBUPROFEN
     Indication: PRODUCT USED FOR UNKNOWN INDICATION
     Dosage: 800 MG, UNK
     Route: 048
     Dates: start: 20141229
  22. ENALAPRIL MALEATE. [Concomitant]
     Active Substance: ENALAPRIL MALEATE
     Indication: PRODUCT USED FOR UNKNOWN INDICATION
     Dosage: 10 MG, UNK
     Route: 048
     Dates: start: 20150306
  23. LUPRON [Suspect]
     Active Substance: LEUPROLIDE ACETATE
     Indication: OESTROGEN RECEPTOR POSITIVE BREAST CANCER
     Dosage: QMO (MONTHLY)
     Route: 030
     Dates: start: 20150116
  24. FASLODEX [Concomitant]
     Active Substance: FULVESTRANT
     Indication: PRODUCT USED FOR UNKNOWN INDICATION
     Dosage: UNK
     Route: 065
     Dates: start: 20150731
  25. TAXOL [Concomitant]
     Active Substance: PACLITAXEL
     Indication: BREAST CANCER METASTATIC
     Dosage: X 18 CYCLES, QMO (MONTHLY)
     Route: 065
     Dates: start: 20131219, end: 20140319
  26. DRONABINOL. [Concomitant]
     Active Substance: DRONABINOL
     Indication: PRODUCT USED FOR UNKNOWN INDICATION
     Dosage: 1 DF, Q6H (PRN)
     Route: 048
     Dates: start: 20150323
  27. AMLODIPINE BESYLATE. [Concomitant]
     Active Substance: AMLODIPINE BESYLATE
     Indication: PRODUCT USED FOR UNKNOWN INDICATION
     Dosage: 10 MG, UNK
     Route: 048
     Dates: start: 20150216
  28. CARISOPRODOL. [Concomitant]
     Active Substance: CARISOPRODOL
     Indication: BACK PAIN
     Dosage: 2 DF, BID
     Route: 048
     Dates: start: 20150416
  29. MORPHIN//MORPHINE SULFATE [Concomitant]
     Indication: PRODUCT USED FOR UNKNOWN INDICATION
     Dosage: 1 DF, Q12H
     Route: 048
     Dates: start: 20150120
  30. SPIRONOLACTONE. [Suspect]
     Active Substance: SPIRONOLACTONE
     Indication: OEDEMA PERIPHERAL
     Dosage: 1 DF, BID
     Route: 048
     Dates: start: 20150416
  31. NAVELBINE [Suspect]
     Active Substance: VINORELBINE TARTRATE
     Indication: OESTROGEN RECEPTOR POSITIVE BREAST CANCER
     Dosage: QW (X 12 WEEKS)
     Route: 065
     Dates: start: 20150408, end: 201507
  32. ZOLPIDEM TARTRATE. [Concomitant]
     Active Substance: ZOLPIDEM TARTRATE
     Indication: INSOMNIA
     Dosage: 1 DF, PRN (AT BED TIME)
     Route: 048
     Dates: start: 20150211

REACTIONS (54)
  - Obesity [Unknown]
  - Hepatic lesion [Recovering/Resolving]
  - Weight increased [Unknown]
  - Libido decreased [Unknown]
  - Micturition urgency [Unknown]
  - Dry skin [Unknown]
  - Bone lesion [Unknown]
  - Musculoskeletal chest pain [Recovering/Resolving]
  - Fatigue [Recovering/Resolving]
  - Insomnia [Unknown]
  - Headache [Unknown]
  - Osteonecrosis of jaw [Unknown]
  - Abdominal distension [Unknown]
  - Vulvovaginal dryness [Unknown]
  - Diabetes mellitus [Unknown]
  - Hyperlipidaemia [Unknown]
  - Back pain [Recovering/Resolving]
  - Hypertension [Unknown]
  - Erythema [Unknown]
  - Anxiety [Unknown]
  - Pain in jaw [Unknown]
  - Rash [Unknown]
  - Pruritus [Unknown]
  - Dizziness [Unknown]
  - Blood pressure increased [Unknown]
  - Depression [Unknown]
  - Appetite disorder [Unknown]
  - Asthenia [Unknown]
  - Vitamin D deficiency [Unknown]
  - Tooth disorder [Unknown]
  - Nausea [Unknown]
  - Arthralgia [Recovering/Resolving]
  - Malignant neoplasm progression [Unknown]
  - Palpitations [Unknown]
  - Paraesthesia [Unknown]
  - Heart rate increased [Unknown]
  - Oedema peripheral [Unknown]
  - Myalgia [Unknown]
  - Tumour marker increased [Unknown]
  - Hepatic steatosis [Unknown]
  - Lacrimation increased [Unknown]
  - Hot flush [Unknown]
  - Dry mouth [Unknown]
  - Dysgeusia [Unknown]
  - Amnesia [Unknown]
  - Disturbance in attention [Unknown]
  - Bone pain [Recovering/Resolving]
  - Hypocalcaemia [Unknown]
  - Tooth infection [Unknown]
  - Breast cancer [Unknown]
  - Neoplasm [Unknown]
  - Hypoaesthesia [Unknown]
  - Affect lability [Unknown]
  - Gastrooesophageal reflux disease [Unknown]

NARRATIVE: CASE EVENT DATE: 20130806
